FAERS Safety Report 16956323 (Version 2)
Quarter: 2019Q4

REPORT INFORMATION
  Report Type: Spontaneous
  Country: FI (occurrence: FI)
  Receive Date: 20191024
  Receipt Date: 20191104
  Transmission Date: 20200122
  Serious: Yes (Hospitalization, Other)
  Sender: FDA-Public Use
  Company Number: FI-PFIZER INC-2019455457

PATIENT
  Age: 73 Year
  Sex: Female

DRUGS (16)
  1. FURESIS [Concomitant]
     Active Substance: FUROSEMIDE
     Dosage: 10 MG, 1X/DAY
  2. NORSPAN [Concomitant]
     Active Substance: BUPRENORPHINE
     Dosage: 5 UG/H
  3. LITALGIN [Concomitant]
     Active Substance: PITOFENONE
     Dosage: UNK UNK, AS NEEDED
  4. LETROZOL [Concomitant]
     Active Substance: LETROZOLE
     Indication: BREAST CANCER METASTATIC
     Dosage: 2.5 MG, 1X/DAY
  5. EXEMESTAN [Concomitant]
     Active Substance: EXEMESTANE
     Indication: BREAST CANCER METASTATIC
     Dosage: 25 MG, 1X/DAY
     Dates: start: 20190926
  6. ELIQUIS [Concomitant]
     Active Substance: APIXABAN
     Dosage: 5 MG, 2X/DAY
  7. KALCIPOS-D [Concomitant]
     Active Substance: CALCIUM CARBONATE\CHOLECALCIFEROL
     Dosage: 1 DF, DAILY
  8. IBRANCE [Suspect]
     Active Substance: PALBOCICLIB
     Indication: BREAST CANCER METASTATIC
     Dosage: 125 MG, UNK
     Dates: start: 20190311
  9. SOMAC [Concomitant]
     Active Substance: PANTOPRAZOLE SODIUM
     Dosage: 40 MG, 1X/DAY
  10. GRANISETRON [Concomitant]
     Active Substance: GRANISETRON
     Dosage: 1 MG, AS NEEDED
  11. LACTULOS [Concomitant]
     Active Substance: LACTULOSE
     Dosage: UNK UNK, AS NEEDED
  12. XGEVA [Concomitant]
     Active Substance: DENOSUMAB
     Dosage: 120 MG, MONTHLY
     Route: 058
  13. IBRANCE [Suspect]
     Active Substance: PALBOCICLIB
     Dosage: 100 MG, 1X/DAY
     Dates: start: 20190709
  14. IMOVANE [Concomitant]
     Active Substance: ZOPICLONE
     Dosage: IN THE EVENINGS
  15. TRIMBOW [Concomitant]
     Active Substance: BECLOMETHASONE DIPROPIONATE\FORMOTEROL FUMARATE\GLYCOPYRROLATE
     Dosage: 2 PUFFS 2X/DAY
  16. PEGORION [Concomitant]
     Active Substance: POLYETHYLENE GLYCOL 4000
     Dosage: UNK UNK, AS NEEDED

REACTIONS (5)
  - Pyrexia [Unknown]
  - Anaemia [Unknown]
  - Sepsis [Unknown]
  - Cytopenia [Unknown]
  - Neutropenia [Recovered/Resolved]

NARRATIVE: CASE EVENT DATE: 2019
